FAERS Safety Report 22309838 (Version 1)
Quarter: 2023Q2

REPORT INFORMATION
  Report Type: Spontaneous
  Country: US (occurrence: None)
  Receive Date: 20230510
  Receipt Date: 20230510
  Transmission Date: 20230722
  Serious: Yes (Other)
  Sender: FDA-Public Use
  Company Number: None

PATIENT
  Age: 75 Year
  Sex: Female
  Weight: 66.6 kg

DRUGS (13)
  1. PREDNISONE [Suspect]
     Active Substance: PREDNISONE
     Indication: Drug hypersensitivity
  2. PREDNISONE [Suspect]
     Active Substance: PREDNISONE
  3. Cevemeline [Concomitant]
  4. METOPROLOL [Concomitant]
     Active Substance: METOPROLOL
  5. ZOLOFT [Concomitant]
     Active Substance: SERTRALINE HYDROCHLORIDE
  6. VALACYCLOVIR [Concomitant]
     Active Substance: VALACYCLOVIR HYDROCHLORIDE
  7. ENALAPRIL [Concomitant]
     Active Substance: ENALAPRIL
  8. SIMVASTATIN [Concomitant]
     Active Substance: SIMVASTATIN
  9. ALPRAZOLAM [Concomitant]
     Active Substance: ALPRAZOLAM
  10. Essential 1 Vitamins [Concomitant]
  11. ASPIRIN [Concomitant]
     Active Substance: ASPIRIN
  12. Dairy Digestive Supplements [Concomitant]
  13. PROBIOTICS NOS [Concomitant]
     Active Substance: PROBIOTICS NOS

REACTIONS (1)
  - Gluten sensitivity [None]

NARRATIVE: CASE EVENT DATE: 20230101
